FAERS Safety Report 17054307 (Version 1)
Quarter: 2019Q4

REPORT INFORMATION
  Report Type: Report from Study
  Country: US (occurrence: US)
  Receive Date: 20191120
  Receipt Date: 20191120
  Transmission Date: 20200122
  Serious: Yes (Death)
  Sender: FDA-Public Use
  Company Number: US-ASTRAZENECA-2019SF41153

PATIENT
  Sex: Male

DRUGS (13)
  1. CLOPIDOGREL [Concomitant]
     Active Substance: CLOPIDOGREL BISULFATE
  2. ONDANSETRON [Concomitant]
     Active Substance: ONDANSETRON
  3. FINASTERIDE. [Concomitant]
     Active Substance: FINASTERIDE
  4. METOPROLOL. [Suspect]
     Active Substance: METOPROLOL
     Route: 065
  5. ATORVASTATIN [Concomitant]
     Active Substance: ATORVASTATIN
  6. OMEPRAZOLE. [Suspect]
     Active Substance: OMEPRAZOLE
     Route: 048
  7. TAGRISSO [Suspect]
     Active Substance: OSIMERTINIB
     Indication: BRONCHIAL CARCINOMA
     Route: 048
  8. OXYCODONE [Concomitant]
     Active Substance: OXYCODONE
  9. METFORMIN [Concomitant]
     Active Substance: METFORMIN HYDROCHLORIDE
  10. LOSARTAN. [Concomitant]
     Active Substance: LOSARTAN
  11. GABAPENTIN. [Concomitant]
     Active Substance: GABAPENTIN
  12. ASPIRIN. [Concomitant]
     Active Substance: ASPIRIN
  13. NICTOINE [Concomitant]

REACTIONS (1)
  - Death [Fatal]
